FAERS Safety Report 17491013 (Version 6)
Quarter: 2020Q2

REPORT INFORMATION
  Report Type: Spontaneous
  Country: BR (occurrence: BR)
  Receive Date: 20200304
  Receipt Date: 20200513
  Transmission Date: 20200713
  Serious: Yes (Other)
  Sender: FDA-Public Use
  Company Number: BR-AMGEN-BRASP2018072601

PATIENT
  Age: 67 Year
  Sex: Female

DRUGS (3)
  1. ENBREL [Suspect]
     Active Substance: ETANERCEPT
     Dosage: 50 MG 1X/WEEK
     Route: 065
     Dates: end: 2019
  2. ENBREL [Suspect]
     Active Substance: ETANERCEPT
     Indication: PSORIATIC ARTHROPATHY
     Dosage: 50 MG 1X/WEEK
     Route: 065
     Dates: start: 201804, end: 201806
  3. ENBREL [Suspect]
     Active Substance: ETANERCEPT
     Indication: PSORIATIC ARTHROPATHY
     Dosage: 50 MG, WEEKLY
     Route: 065
     Dates: start: 2019, end: 2020

REACTIONS (15)
  - Hypersensitivity [Recovered/Resolved]
  - Throat irritation [Recovered/Resolved]
  - Arthralgia [Recovering/Resolving]
  - Tooth infection [Unknown]
  - Joint effusion [Recovering/Resolving]
  - Sneezing [Recovered/Resolved]
  - Joint swelling [Recovering/Resolving]
  - Gait disturbance [Recovering/Resolving]
  - Weight decreased [Recovered/Resolved]
  - Nasopharyngitis [Unknown]
  - Allergic cough [Recovered/Resolved]
  - Sensitivity to weather change [Recovered/Resolved]
  - Rhinitis [Recovered/Resolved]
  - Metastasis [Not Recovered/Not Resolved]
  - Injection site erythema [Recovered/Resolved]

NARRATIVE: CASE EVENT DATE: 20180517
